FAERS Safety Report 6344839-4 (Version None)
Quarter: 2009Q3

REPORT INFORMATION
  Report Type: 
  Country: None (occurrence: None)
  Receive Date: 20090904
  Receipt Date: 20090821
  Transmission Date: 20100115
  Serious: Yes (Hospitalization, Other)
  Sender: FDA-Public Use
  Company Number: 2009001658

PATIENT
  Age: 76 Year
  Sex: Female
  Weight: 73.3 kg

DRUGS (6)
  1. TRISENOX [Suspect]
     Indication: ACUTE MYELOID LEUKAEMIA
     Dosage: 16.4 MG (16.4 MG, 1 IN 1 D), INTRAVENOUS
     Route: 042
     Dates: start: 20090305
  2. CYTARABINE [Suspect]
     Indication: ACUTE MYELOID LEUKAEMIA
     Dosage: 33.8 MG (16.9 MG, 2 IN 1 D), SUBCUTANEOUS
     Route: 058
     Dates: start: 20090305
  3. ARTIFICIAL TEARS (HYPROMELLOSE) [Concomitant]
  4. OXYCODONE HCL [Concomitant]
  5. XALATAN [Concomitant]
  6. LIPITOR [Concomitant]

REACTIONS (9)
  - ACUTE RESPIRATORY DISTRESS SYNDROME [None]
  - CARDIAC FAILURE CONGESTIVE [None]
  - HAEMOGLOBIN DECREASED [None]
  - MITRAL VALVE INCOMPETENCE [None]
  - PLATELET COUNT DECREASED [None]
  - PNEUMONIA [None]
  - PULMONARY OEDEMA [None]
  - TACHYCARDIA [None]
  - TYPE 2 DIABETES MELLITUS [None]
